FAERS Safety Report 9700907 (Version 2)
Quarter: 2014Q1

REPORT INFORMATION
  Report Type: Spontaneous
  Country: GB (occurrence: None)
  Receive Date: 20131119
  Receipt Date: 20140311
  Transmission Date: 20141002
  Serious: Yes (Death)
  Sender: FDA-Public Use
  Company Number: CL-533-2013

PATIENT
  Age: 86 Year
  Sex: Female

DRUGS (6)
  1. METRONIDAZOLE [Suspect]
     Indication: LIVER ABSCESS
     Route: 042
     Dates: start: 20121025, end: 20121025
  2. TAZOCIN [Suspect]
     Indication: LIVER ABSCESS
     Route: 042
     Dates: start: 20131018, end: 20131025
  3. TAZOCIN [Suspect]
     Indication: SEPSIS
     Route: 042
     Dates: start: 20131018, end: 20131025
  4. BRINZOLAMIDE, LATANOPROS [Concomitant]
  5. MAGNESIUM GLYCEROPHOSPHATE [Concomitant]
  6. TAZOBACTAM [Concomitant]

REACTIONS (2)
  - Anaphylactic reaction [None]
  - Hepatic lesion [None]
